FAERS Safety Report 6570726-2 (Version None)
Quarter: 2010Q1

REPORT INFORMATION
  Report Type: 
  Country: None (occurrence: None)
  Receive Date: 20100204
  Receipt Date: 20100201
  Transmission Date: 20100710
  Serious: Yes (Death, Life-Threatening, Hospitalization)
  Sender: FDA-Public Use
  Company Number: B0626622A

PATIENT
  Sex: Female
  Weight: 90 kg

DRUGS (17)
  1. ARIXTRA [Suspect]
     Indication: DRUG USE FOR UNKNOWN INDICATION
     Dosage: 2.5MG PER DAY
     Route: 058
     Dates: start: 20090402, end: 20090422
  2. CORDARONE [Concomitant]
     Indication: DRUG USE FOR UNKNOWN INDICATION
     Dosage: 200MG PER DAY
     Route: 048
  3. DIAFUSOR 10 [Concomitant]
     Indication: DRUG USE FOR UNKNOWN INDICATION
     Dosage: 10MG PER DAY
     Route: 062
  4. LAROXYL DROPS [Concomitant]
     Indication: DRUG USE FOR UNKNOWN INDICATION
     Dosage: 24DROP PER DAY
     Route: 048
  5. DEROXAT [Concomitant]
     Indication: DRUG USE FOR UNKNOWN INDICATION
     Dosage: 20MG PER DAY
     Route: 048
  6. DIGITALINE NATIVELLE [Concomitant]
     Dosage: .125MG PER DAY
     Route: 048
     Dates: end: 20090417
  7. COVERSYL [Concomitant]
     Dosage: 2MG PER DAY
     Route: 048
  8. DOMPERIDONE [Concomitant]
     Indication: NAUSEA
     Dosage: 10MG THREE TIMES PER DAY
     Route: 048
  9. MACROGOL 4000 [Concomitant]
     Indication: CONSTIPATION
     Dosage: 10G PER DAY
     Route: 048
  10. BUMEX [Concomitant]
     Indication: DRUG USE FOR UNKNOWN INDICATION
     Dosage: 2.25MG PER DAY
     Route: 048
  11. DIFFU K [Concomitant]
     Route: 048
     Dates: end: 20090417
  12. TARDYFERON B9 [Concomitant]
     Indication: IRON DEFICIENCY
     Dosage: 2TAB PER DAY
     Route: 048
  13. LEVOTHYROXINE SODIUM [Concomitant]
     Indication: HYPOTHYROIDISM
     Dosage: 50MCG PER DAY
     Route: 048
  14. EUPANTOL [Concomitant]
     Indication: DRUG USE FOR UNKNOWN INDICATION
     Dosage: 40MG PER DAY
     Route: 048
  15. ZOPICLONE [Concomitant]
     Indication: INSOMNIA
     Dosage: 7.5MG PER DAY
     Route: 048
  16. VITAMIN B-12 [Concomitant]
     Indication: DRUG USE FOR UNKNOWN INDICATION
     Dosage: 1TAB PER DAY
     Route: 065
  17. MOVICOL [Concomitant]
     Indication: DRUG USE FOR UNKNOWN INDICATION
     Dosage: 1SAC TWICE PER DAY

REACTIONS (9)
  - ACUTE PULMONARY OEDEMA [None]
  - BLISTER [None]
  - DEHYDRATION [None]
  - MEDICATION ERROR [None]
  - OEDEMA PERIPHERAL [None]
  - PAIN [None]
  - RENAL FAILURE ACUTE [None]
  - RESPIRATORY DISTRESS [None]
  - SPONTANEOUS HAEMATOMA [None]
